FAERS Safety Report 4875780-1 (Version None)
Quarter: 2006Q1

REPORT INFORMATION
  Report Type: 
  Country: None (occurrence: None)
  Receive Date: 20060104
  Receipt Date: 20051223
  Transmission Date: 20060701
  Serious: Yes (Other)
  Sender: FDA-Public Use
  Company Number: 2005RL000194

PATIENT
  Age: 53 Year
  Sex: Male

DRUGS (4)
  1. OMACOR [Suspect]
     Indication: HYPERTRIGLYCERIDAEMIA
     Dosage: 2000 MG;QD;PO
     Route: 048
     Dates: start: 20051024, end: 20051129
  2. OLMETEC [Concomitant]
  3. PANTOZOL [Concomitant]
  4. ASPIRIN [Concomitant]

REACTIONS (1)
  - RHABDOMYOLYSIS [None]
